FAERS Safety Report 15060877 (Version 4)
Quarter: 2018Q3

REPORT INFORMATION
  Report Type: Spontaneous
  Country: US (occurrence: US)
  Receive Date: 20180625
  Receipt Date: 20180718
  Transmission Date: 20181010
  Serious: Yes (Other)
  Sender: FDA-Public Use
  Company Number: US-CELGENEUS-USA-20180606505

PATIENT
  Age: 62 Year
  Sex: Female

DRUGS (3)
  1. OTEZLA [Suspect]
     Active Substance: APREMILAST
     Indication: PUSTULAR PSORIASIS
     Dosage: 60 MILLIGRAM
     Route: 048
     Dates: start: 20180131, end: 20180606
  2. OTEZLA [Suspect]
     Active Substance: APREMILAST
     Indication: PSORIATIC ARTHROPATHY
  3. OPDIVO [Suspect]
     Active Substance: NIVOLUMAB
     Indication: MALIGNANT MELANOMA
     Route: 065
     Dates: start: 201801

REACTIONS (7)
  - Arthralgia [Unknown]
  - Psoriatic arthropathy [Unknown]
  - Pancreatitis [Unknown]
  - Decreased appetite [Unknown]
  - Rash generalised [Unknown]
  - Chills [Unknown]
  - Weight decreased [Unknown]

NARRATIVE: CASE EVENT DATE: 201801
